FAERS Safety Report 4505113-1 (Version None)
Quarter: 2004Q4

REPORT INFORMATION
  Report Type: 
  Country: None (occurrence: None)
  Receive Date: 20041119
  Receipt Date: 20040226
  Transmission Date: 20050328
  Serious: Yes (Death)
  Sender: FDA-Public Use
  Company Number: US-ABBOTT-04P-163-0251566-00

PATIENT
  Sex: Male

DRUGS (3)
  1. RITONAVIR SOFT GELATIN CAPSULES [Suspect]
     Indication: HIV INFECTION
     Route: 048
     Dates: start: 20040210, end: 20040220
  2. TIPRANAVIR [Concomitant]
     Indication: HIV INFECTION
     Route: 048
     Dates: start: 20040210, end: 20040221
  3. ENFUVIRTIDE [Concomitant]
     Indication: HIV INFECTION
     Dates: start: 20040210, end: 20040221

REACTIONS (24)
  - ACUTE RESPIRATORY DISTRESS SYNDROME [None]
  - CARDIAC MURMUR [None]
  - CARDIO-RESPIRATORY ARREST [None]
  - CHEST PAIN [None]
  - CLOSTRIDIAL INFECTION [None]
  - CONTRAST MEDIA REACTION [None]
  - CONVULSION [None]
  - CYTOMEGALOVIRUS INFECTION [None]
  - DYSPHAGIA [None]
  - ELECTROMECHANICAL DISSOCIATION [None]
  - EPIGASTRIC DISCOMFORT [None]
  - HAEMATEMESIS [None]
  - HEART RATE INCREASED [None]
  - INTERSTITIAL LUNG DISEASE [None]
  - LUNG INFECTION PSEUDOMONAL [None]
  - NAUSEA [None]
  - PNEUMOCYSTIS CARINII PNEUMONIA [None]
  - PNEUMONIA [None]
  - PNEUMONITIS [None]
  - PSEUDOMONAL SEPSIS [None]
  - SEPSIS [None]
  - TACHYPNOEA [None]
  - TOXOPLASMOSIS [None]
  - WHITE BLOOD CELL COUNT DECREASED [None]
